FAERS Safety Report 6095750-8 (Version None)
Quarter: 2009Q1

REPORT INFORMATION
  Report Type: 
  Country: None (occurrence: None)
  Receive Date: 20090227
  Receipt Date: 20080624
  Transmission Date: 20090719
  Serious: No
  Sender: FDA-Public Use
  Company Number: A0732028A

PATIENT
  Sex: Female

DRUGS (12)
  1. LAMICTAL [Suspect]
     Indication: DRUG USE FOR UNKNOWN INDICATION
     Dosage: 200MG UNKNOWN
     Route: 048
  2. ZANTAC [Concomitant]
  3. ZYPREXA [Concomitant]
  4. EFFEXOR [Concomitant]
  5. CEPHALEXIN [Concomitant]
  6. UNSPECIFIED MEDICATION [Concomitant]
  7. PROZAC [Concomitant]
  8. REMERON [Concomitant]
  9. REMERON [Concomitant]
  10. VALIUM [Concomitant]
  11. CLONAZEPAM [Concomitant]
  12. VICODIN [Concomitant]

REACTIONS (6)
  - ABDOMINAL DISTENSION [None]
  - LOCAL SWELLING [None]
  - OEDEMA PERIPHERAL [None]
  - PLATELET COUNT INCREASED [None]
  - RENAL DISORDER [None]
  - SWELLING [None]
